FAERS Safety Report 17994581 (Version 2)
Quarter: 2020Q3

REPORT INFORMATION
  Report Type: Report from Study
  Country: US (occurrence: US)
  Receive Date: 20200708
  Receipt Date: 20200901
  Transmission Date: 20201103
  Serious: No
  Sender: FDA-Public Use
  Company Number: NVSC2020US182887

PATIENT
  Sex: Female

DRUGS (1)
  1. ENTRESTO [Suspect]
     Active Substance: SACUBITRIL\VALSARTAN
     Indication: PRODUCT USED FOR UNKNOWN INDICATION
     Dosage: 1 DF (49/51 MG), BID
     Route: 048
     Dates: start: 202001

REACTIONS (3)
  - Dyspnoea exertional [Recovered/Resolved]
  - Fatigue [Unknown]
  - Weight increased [Unknown]
